FAERS Safety Report 15706724 (Version 2)
Quarter: 2019Q2

REPORT INFORMATION
  Report Type: Spontaneous
  Country: CA (occurrence: CA)
  Receive Date: 20181210
  Receipt Date: 20190412
  Transmission Date: 20190711
  Serious: Yes (Other)
  Sender: FDA-Public Use
  Company Number: CA-BAUSCH-BL-2018-033728

PATIENT
  Age: 55 Year
  Sex: Male

DRUGS (12)
  1. PRIMIDONE. [Suspect]
     Active Substance: PRIMIDONE
     Indication: SPINOCEREBELLAR ATAXIA
     Route: 065
  2. GABAPENTIN. [Suspect]
     Active Substance: GABAPENTIN
     Indication: SPINOCEREBELLAR ATAXIA
     Route: 065
  3. TOPIRAMATE. [Suspect]
     Active Substance: TOPIRAMATE
     Indication: DYSTONIC TREMOR
  4. LEVODOPA [Suspect]
     Active Substance: LEVODOPA
     Indication: SPINOCEREBELLAR ATAXIA
     Route: 065
  5. TRIHEXYPHENIDYL [Suspect]
     Active Substance: TRIHEXYPHENIDYL
     Indication: DYSTONIC TREMOR
  6. PROPRANOLOL [Suspect]
     Active Substance: PROPRANOLOL HYDROCHLORIDE
     Indication: DYSTONIC TREMOR
  7. LEVODOPA [Suspect]
     Active Substance: LEVODOPA
     Indication: DYSTONIC TREMOR
  8. PROPRANOLOL [Suspect]
     Active Substance: PROPRANOLOL HYDROCHLORIDE
     Indication: SPINOCEREBELLAR ATAXIA
     Route: 065
  9. TRIHEXYPHENIDYL [Suspect]
     Active Substance: TRIHEXYPHENIDYL
     Indication: SPINOCEREBELLAR ATAXIA
     Route: 065
  10. PRIMIDONE. [Suspect]
     Active Substance: PRIMIDONE
     Indication: DYSTONIC TREMOR
  11. GABAPENTIN. [Suspect]
     Active Substance: GABAPENTIN
     Indication: DYSTONIC TREMOR
  12. TOPIRAMATE. [Suspect]
     Active Substance: TOPIRAMATE
     Indication: SPINOCEREBELLAR ATAXIA
     Route: 065

REACTIONS (1)
  - Treatment failure [Unknown]
